FAERS Safety Report 15295362 (Version 1)
Quarter: 2018Q3

REPORT INFORMATION
  Report Type: Spontaneous
  Country: PT (occurrence: PT)
  Receive Date: 20180820
  Receipt Date: 20180820
  Transmission Date: 20181010
  Serious: Yes (Hospitalization, Other)
  Sender: FDA-Public Use
  Company Number: PHHY2018PT071788

PATIENT
  Age: 13 Year
  Sex: Male

DRUGS (1)
  1. CEFTRIAXONE. [Suspect]
     Active Substance: CEFTRIAXONE
     Indication: SALMONELLOSIS
     Dosage: 3 G, UNK
     Route: 065

REACTIONS (2)
  - Cholelithiasis [Recovered/Resolved]
  - Bile duct stone [Recovered/Resolved]
